FAERS Safety Report 24009362 (Version 1)
Quarter: 2024Q2

REPORT INFORMATION
  Report Type: Report from Study
  Country: AU (occurrence: None)
  Receive Date: 20240625
  Receipt Date: 20240625
  Transmission Date: 20240715
  Serious: Yes (Other)
  Sender: FDA-Public Use
  Company Number: 2024A142420

PATIENT

DRUGS (1)
  1. OLAPARIB [Suspect]
     Active Substance: OLAPARIB
     Route: 048

REACTIONS (5)
  - Toxicity to various agents [Unknown]
  - Adverse drug reaction [Unknown]
  - Nausea [Unknown]
  - Diarrhoea [Unknown]
  - Full blood count abnormal [Unknown]
